FAERS Safety Report 5059223-3 (Version None)
Quarter: 2006Q3

REPORT INFORMATION
  Report Type: 
  Country: None (occurrence: None)
  Receive Date: 20060718
  Receipt Date: 20060705
  Transmission Date: 20061208
  Serious: Yes (Other)
  Sender: FDA-Public Use
  Company Number: 2006083960

PATIENT
  Age: 38 Year
  Sex: Female

DRUGS (2)
  1. ZITHROMAX [Suspect]
     Indication: TRACHEOBRONCHITIS
     Dosage: 500 MG (250 MG, 2 IN 1 D), ORAL
     Route: 048
     Dates: start: 20060704, end: 20060705
  2. SINUPRET (ASCORBIC ACID, GENTIAN, PRIMULA FLOWERS, RUMICIS ASETOSA, SA [Concomitant]

REACTIONS (3)
  - DRUG HYPERSENSITIVITY [None]
  - FACIAL PALSY [None]
  - UNDERDOSE [None]
